FAERS Safety Report 14451893 (Version 1)
Quarter: 2018Q1

REPORT INFORMATION
  Report Type: Spontaneous
  Country: US (occurrence: US)
  Receive Date: 20180129
  Receipt Date: 20180129
  Transmission Date: 20180509
  Serious: No
  Sender: FDA-Public Use
  Company Number: US-ABBVIE-17K-163-2205433-00

PATIENT
  Sex: Female

DRUGS (3)
  1. XELJANZ [Suspect]
     Active Substance: TOFACITINIB CITRATE
     Indication: PRODUCT USED FOR UNKNOWN INDICATION
     Route: 065
  2. XELJANZ [Suspect]
     Active Substance: TOFACITINIB CITRATE
     Route: 065
  3. HUMIRA [Suspect]
     Active Substance: ADALIMUMAB
     Indication: PRODUCT USED FOR UNKNOWN INDICATION
     Route: 058

REACTIONS (9)
  - Tension [Unknown]
  - Arthritis [Unknown]
  - Musculoskeletal stiffness [Unknown]
  - Injection site pain [Unknown]
  - Diarrhoea [Unknown]
  - Visual impairment [Unknown]
  - Sinus headache [Unknown]
  - Injection site erythema [Unknown]
  - Headache [Unknown]
